FAERS Safety Report 8063346-4 (Version None)
Quarter: 2012Q1

REPORT INFORMATION
  Report Type: 
  Country: None (occurrence: None)
  Receive Date: 20120123
  Receipt Date: 20120119
  Transmission Date: 20120608
  Serious: Yes (Other)
  Sender: FDA-Public Use
  Company Number: PHFR2012IE000677

PATIENT
  Sex: Male

DRUGS (9)
  1. CLOZARIL [Suspect]
     Dosage: 6.25 MG
  2. BETA BLOCKING AGENTS [Concomitant]
     Indication: HYPERTENSION
  3. RISPERIDONE [Concomitant]
     Dosage: 2 MG, DAILY
  4. VALIUM [Concomitant]
     Dosage: 2 MG, BID
  5. HALOPERIDOL [Concomitant]
     Dosage: 5 MG, QID
  6. DIURETICS [Concomitant]
     Indication: HYPERTENSION
  7. CLOZARIL [Suspect]
     Indication: SCHIZOPHRENIA
     Dosage: 12.5 MG
     Route: 048
     Dates: start: 20120109
  8. CLOZARIL [Suspect]
     Dosage: 12.5 MG
  9. TENORIC [Concomitant]

REACTIONS (3)
  - HEART RATE ABNORMAL [None]
  - HEART RATE DECREASED [None]
  - DIZZINESS [None]
